FAERS Safety Report 19964257 (Version 5)
Quarter: 2022Q1

REPORT INFORMATION
  Report Type: Report from Study
  Country: US (occurrence: US)
  Receive Date: 20211018
  Receipt Date: 20220307
  Transmission Date: 20220423
  Serious: No
  Sender: FDA-Public Use
  Company Number: US-NOVARTISTESTPH-NVSC2021US237360

PATIENT
  Age: 49 Year
  Sex: Male

DRUGS (1)
  1. COSENTYX [Suspect]
     Active Substance: SECUKINUMAB
     Indication: Psoriasis
     Dosage: 300 MG, QMO (Q5W AND THEN Q4W)
     Route: 058
     Dates: start: 20210820

REACTIONS (9)
  - Erythema [Unknown]
  - Dry skin [Unknown]
  - Pruritus [Unknown]
  - COVID-19 [Unknown]
  - Headache [Unknown]
  - Ageusia [Unknown]
  - Anosmia [Unknown]
  - Psoriasis [Unknown]
  - Product dose omission issue [Unknown]

NARRATIVE: CASE EVENT DATE: 20211015
